FAERS Safety Report 7383032-3 (Version None)
Quarter: 2011Q1

REPORT INFORMATION
  Report Type: 
  Country: None (occurrence: None)
  Receive Date: 20110330
  Receipt Date: 20110323
  Transmission Date: 20110831
  Serious: No
  Sender: FDA-Public Use
  Company Number: US-PFIZER INC-2011065300

PATIENT
  Sex: Male
  Weight: 81.6 kg

DRUGS (2)
  1. LYRICA [Suspect]
     Indication: NERVOUS SYSTEM DISORDER
     Dosage: 200 MG, 1X/DAY
     Route: 048
     Dates: start: 20110101, end: 20110321
  2. OXYBUTYNIN [Concomitant]
     Indication: BLADDER DISORDER
     Dosage: 10 MG, 1X/DAY

REACTIONS (2)
  - HEADACHE [None]
  - VISION BLURRED [None]
